FAERS Safety Report 7301513-5 (Version None)
Quarter: 2011Q1

REPORT INFORMATION
  Report Type: 
  Country: None (occurrence: None)
  Receive Date: 20110218
  Receipt Date: 20100920
  Transmission Date: 20110831
  Serious: Yes (Other)
  Sender: FDA-Public Use
  Company Number: US-BRISTOL-MYERS SQUIBB COMPANY-15296486

PATIENT
  Age: 38 Year
  Sex: Female

DRUGS (2)
  1. KENALOG-10 [Suspect]
     Dates: start: 20090219
  2. BUPIVACAINE HCL [Suspect]
     Dates: start: 20090219

REACTIONS (12)
  - PAIN IN EXTREMITY [None]
  - MENSTRUAL DISORDER [None]
  - MUSCULAR WEAKNESS [None]
  - SOFT TISSUE ATROPHY [None]
  - ABDOMINAL PAIN UPPER [None]
  - ARTHRALGIA [None]
  - DEPRESSION [None]
  - HEADACHE [None]
  - MOOD SWINGS [None]
  - INJECTION SITE ATROPHY [None]
  - ACNE [None]
  - TENOSYNOVITIS [None]
